FAERS Safety Report 12076456 (Version 1)
Quarter: 2016Q1

REPORT INFORMATION
  Report Type: Spontaneous
  Country: IN (occurrence: IN)
  Receive Date: 20160215
  Receipt Date: 20160215
  Transmission Date: 20160526
  Serious: Yes (Hospitalization)
  Sender: FDA-Public Use
  Company Number: IN-DRREDDYS-USA/IND/16/0068234

PATIENT
  Age: 47 Year
  Sex: Female

DRUGS (2)
  1. CLOPIDOGREL [Suspect]
     Active Substance: CLOPIDOGREL BISULFATE
     Indication: ANTIPLATELET THERAPY
     Route: 065
  2. ACETYLSALICYLIC ACID [Suspect]
     Active Substance: ASPIRIN
     Indication: ANTIPLATELET THERAPY
     Route: 065

REACTIONS (9)
  - Haemoglobin decreased [Not Recovered/Not Resolved]
  - Dysphagia [Unknown]
  - Pleural effusion [Unknown]
  - Post procedural haematoma [Recovered/Resolved]
  - Chest pain [Not Recovered/Not Resolved]
  - Oxygen saturation decreased [Unknown]
  - Vomiting [Not Recovered/Not Resolved]
  - Tachycardia [Unknown]
  - Oesophageal rupture [Unknown]
